FAERS Safety Report 9639745 (Version 2)
Quarter: 2014Q1

REPORT INFORMATION
  Report Type: Report from Study
  Country: SE (occurrence: SE)
  Receive Date: 20131023
  Receipt Date: 20140218
  Transmission Date: 20141002
  Serious: Yes (Life-Threatening, Other)
  Sender: FDA-Public Use
  Company Number: SE-AMGEN-SWECT2013074283

PATIENT
  Age: 73 Year
  Sex: Female

DRUGS (3)
  1. ETANERCEPT [Suspect]
     Indication: RHEUMATOID ARTHRITIS
     Dosage: 50 MG, UNKNOWN FREQUENCY
     Route: 065
     Dates: start: 20101008, end: 20130725
  2. METHOTREXATE [Concomitant]
     Dosage: 7.5 MG, UNKNOWN FREQUENCY
     Dates: start: 20100927, end: 20130725
  3. PREDNISOLON                        /00016201/ [Concomitant]
     Dosage: 10 MG, UNKNOWN FREQUENCY
     Dates: start: 20101008

REACTIONS (2)
  - Rectal perforation [Recovering/Resolving]
  - Arterial rupture [Recovering/Resolving]
